FAERS Safety Report 24734483 (Version 1)
Quarter: 2024Q4

REPORT INFORMATION
  Report Type: Report from Study
  Country: US (occurrence: US)
  Receive Date: 20241214
  Receipt Date: 20241214
  Transmission Date: 20250115
  Serious: Yes (Other)
  Sender: AMGEN
  Company Number: US-AMGEN-USASL2024095781

PATIENT
  Age: 79 Year
  Sex: Female
  Weight: 72.7 kg

DRUGS (30)
  1. ENBREL [Suspect]
     Active Substance: ETANERCEPT
     Indication: Arthropathy
     Dosage: 50 MILLIGRAM, QWK
     Route: 058
     Dates: start: 20230803
  2. ENBREL [Suspect]
     Active Substance: ETANERCEPT
     Indication: Off label use
  3. TYLENOL [Concomitant]
     Active Substance: ACETAMINOPHEN
     Dosage: 1,300 MG BY MOUTH EVERY 8 (EIGHT) HOURS AS NEEDED
     Route: 048
     Dates: start: 20230613
  4. PROAIR HFA [Concomitant]
     Active Substance: ALBUTEROL SULFATE
     Dosage: INHALE 2 PUFFS EVERY 6 (SIX) HOURS AS NEEDED
     Dates: start: 20220811
  5. ELIQUIS [Concomitant]
     Active Substance: APIXABAN
     Dosage: 5 MILLIGRAM, BID
     Route: 048
     Dates: start: 20240619
  6. LIPITOR [Concomitant]
     Active Substance: ATORVASTATIN CALCIUM
     Dosage: 20 MILLIGRAM, QD, EVERY NIGHT
     Route: 048
     Dates: start: 20241003
  7. CYMBALTA [Concomitant]
     Active Substance: DULOXETINE HYDROCHLORIDE
     Dosage: 30 MILLIGRAM, TAKE ONE CAPSULE BY MOUTH FOR 6 DAYS, THEN 1 CAPSULE TWICE DAILY
     Route: 048
     Dates: start: 20241126
  8. NEURONTIN [Concomitant]
     Active Substance: GABAPENTIN
     Dosage: 300 MILLIGRAM, QD
     Route: 048
     Dates: start: 20241203
  9. HUMALOG [Concomitant]
     Active Substance: INSULIN LISPRO
     Dosage: ADMINISTER 2 UNITS UNDER THE SKIN THREE TIMES DAILY WITH MEALS PER SLIDING SCALE
     Dates: start: 20241120
  10. LANTUS SOLOSTAR [Concomitant]
     Active Substance: INSULIN GLARGINE
     Dosage: INJECT 6 UNITS UNDER THE SKIN NIGHTLY
     Dates: start: 20241121
  11. LEVALBUTEROL [Concomitant]
     Active Substance: LEVALBUTEROL
     Dosage: 1.25 MILLIGRAM EVERY 8 (EIGHT) HOURS AS NEEDED
     Dates: start: 20240402
  12. SYNTHROID [Concomitant]
     Active Substance: LEVOTHYROXINE SODIUM
     Dosage: 100 MICROGRAM, QD
     Route: 048
     Dates: start: 20240611
  13. LOPRESSOR [Concomitant]
     Active Substance: METOPROLOL TARTRATE
     Dosage: 25 MILLIGRAM, BID
     Route: 048
     Dates: start: 20241126
  14. SINGULAIR [Concomitant]
     Active Substance: MONTELUKAST SODIUM
     Dosage: 10 MILLIGRAM, QD
     Route: 048
     Dates: start: 20241002
  15. CELLCEPT [Concomitant]
     Active Substance: MYCOPHENOLATE MOFETIL
     Dosage: 500 MILLIGRAM, BID
     Route: 048
     Dates: start: 20241111
  16. NARCAN [Concomitant]
     Active Substance: NALOXONE HYDROCHLORIDE
     Dosage: 1 SPRAY  (4 MG TOTAL) INTO EACH NOSTRIL AS NEEDED MAY REPEAT IN 2-3 MIN IN OPPOSITE NOSTRIL
     Route: 045
     Dates: start: 20230714
  17. PERCOCET [Concomitant]
     Active Substance: ACETAMINOPHEN\OXYCODONE HYDROCHLORIDE
     Dosage: 5-325 MILLIGRAM,  BY MOUTH EVERY 1 (ONE) DAY AS NEEDED
     Route: 048
     Dates: start: 20241029
  18. PROTONIX [Concomitant]
     Active Substance: PANTOPRAZOLE SODIUM
     Dosage: 40 MILLIGRAM, QD
     Route: 048
     Dates: start: 20241106
  19. POLYETHYLENE GLYCOL 3350 [Concomitant]
     Active Substance: POLYETHYLENE GLYCOL 3350
     Dosage: 17 GRAM, QD
     Route: 048
     Dates: start: 20230709
  20. DELTASONE [Concomitant]
     Active Substance: PREDNISONE
     Dosage: 10 MILLIGRAM, BID
     Route: 048
     Dates: start: 20240314
  21. PROVENTIL [Concomitant]
     Active Substance: ALBUTEROL
     Dosage: INHALE 2 PUFFS EVERY 6 (SIX) HOURS AS NEEDED
     Dates: start: 20220811
  22. VENTOLIN [Concomitant]
     Active Substance: ALBUTEROL SULFATE
     Dosage: INHALE 2 PUFFS EVERY 6 (SIX) HOURS AS NEEDED
     Dates: start: 20220811
  23. VITAMIN C [Concomitant]
     Active Substance: ASCORBIC ACID
     Dosage: UNK
  24. CALCIUM [Concomitant]
     Active Substance: CALCIUM
     Dosage: UNK
  25. TEMOVATE [Concomitant]
     Active Substance: CLOBETASOL PROPIONATE
     Dosage: UNK
  26. PEPCID [Concomitant]
     Active Substance: FAMOTIDINE
     Dosage: 40 MILLIGRAM
  27. LEVOTHROID [Concomitant]
     Active Substance: LEVOTHYROXINE SODIUM
     Dosage: 100 MICROGRAM, QD
     Route: 048
     Dates: start: 20240611
  28. COZAAR [Concomitant]
     Active Substance: LOSARTAN POTASSIUM
     Dosage: 25 MILLIGRAM, QD
     Route: 048
  29. GLUCOPHAGE [Concomitant]
     Active Substance: METFORMIN HYDROCHLORIDE
     Dosage: 500 MILLIGRAM, BID
     Route: 048
  30. DITROPAN [Concomitant]
     Active Substance: OXYBUTYNIN CHLORIDE
     Dosage: 10 MILLIGRAM, QD
     Route: 048

REACTIONS (18)
  - Immunodeficiency [Unknown]
  - Thoracic vertebral fracture [Unknown]
  - Spinal compression fracture [Unknown]
  - Fractured sacrum [Unknown]
  - Fall [Unknown]
  - Bronchitis [Recovering/Resolving]
  - Memory impairment [Not Recovered/Not Resolved]
  - Greater trochanteric pain syndrome [Unknown]
  - Appetite disorder [Unknown]
  - Fatigue [Unknown]
  - Temperature intolerance [Unknown]
  - Arthralgia [Unknown]
  - Arthritis [Unknown]
  - Intervertebral disc degeneration [Unknown]
  - Myalgia [Unknown]
  - Product dose omission issue [Unknown]
  - Product prescribing error [Unknown]
  - Off label use [Unknown]

NARRATIVE: CASE EVENT DATE: 20230803
